FAERS Safety Report 5875846-3 (Version None)
Quarter: 2008Q3

REPORT INFORMATION
  Report Type: 
  Country: None (occurrence: None)
  Receive Date: 20080909
  Receipt Date: 20080828
  Transmission Date: 20090109
  Serious: Yes (Other)
  Sender: FDA-Public Use
  Company Number: JP-PFIZER INC-2008072904

PATIENT
  Age: 60 Year
  Sex: Male
  Weight: 49.1 kg

DRUGS (3)
  1. DALACIN S [Suspect]
     Indication: PULMONARY EMBOLISM
  2. DIFLUCAN [Suspect]
     Indication: ENDOPHTHALMITIS
  3. INSULIN [Concomitant]

REACTIONS (15)
  - ACUTE PRERENAL FAILURE [None]
  - BLOOD PRESSURE DECREASED [None]
  - C-REACTIVE PROTEIN INCREASED [None]
  - DISEASE PROGRESSION [None]
  - GLUCOSE URINE PRESENT [None]
  - GLYCOSYLATED HAEMOGLOBIN INCREASED [None]
  - HEART RATE INCREASED [None]
  - HYPERKALAEMIA [None]
  - HYPONATRAEMIA [None]
  - HYPOXIA [None]
  - MICROANGIOPATHY [None]
  - NEPHROPATHY [None]
  - PROTEIN URINE PRESENT [None]
  - PSEUDOMEMBRANOUS COLITIS [None]
  - SCAB [None]
